FAERS Safety Report 9841883 (Version 2)
Quarter: 2014Q1

REPORT INFORMATION
  Report Type: Spontaneous
  Country: FR (occurrence: FR)
  Receive Date: 20140124
  Receipt Date: 20140130
  Transmission Date: 20141002
  Serious: Yes (Other)
  Sender: FDA-Public Use
  Company Number: FR-BAYER-2014-008419

PATIENT
  Age: 73 Year
  Sex: Female

DRUGS (4)
  1. NEXAVAR [Suspect]
     Indication: THYROID CANCER METASTATIC
     Dosage: 400 MG, BID
  2. NEXAVAR [Suspect]
     Indication: THYROID CANCER METASTATIC
     Dosage: 800 MG, BID
  3. NEXAVAR [Suspect]
     Indication: THYROID CANCER METASTATIC
     Dosage: 1000 MG, BID
  4. NEXAVAR [Suspect]
     Indication: THYROID CANCER METASTATIC
     Dosage: 1600 MG, BID

REACTIONS (17)
  - Thyroid cancer metastatic [None]
  - Metastases to lung [None]
  - Nephrotic syndrome [None]
  - Proteinuria [None]
  - Oedema peripheral [None]
  - Hypertension [None]
  - Proteinuria [Recovered/Resolved]
  - Hypertension [None]
  - Overdose [None]
  - Alopecia [None]
  - Diarrhoea [None]
  - Diarrhoea [None]
  - Diarrhoea [None]
  - Diarrhoea [None]
  - Palmar-plantar erythrodysaesthesia syndrome [None]
  - Palmar-plantar erythrodysaesthesia syndrome [None]
  - Palmar-plantar erythrodysaesthesia syndrome [None]
